FAERS Safety Report 16762275 (Version 2)
Quarter: 2019Q4

REPORT INFORMATION
  Report Type: Report from Study
  Country: None (occurrence: NL)
  Receive Date: 20190831
  Receipt Date: 20191017
  Transmission Date: 20200122
  Serious: Yes (Death, Other)
  Sender: FDA-Public Use
  Company Number: NL-ABBVIE-19K-114-2908618-00

PATIENT
  Age: 80 Year
  Sex: Female
  Weight: 57 kg

DRUGS (1)
  1. DUODOPA [Suspect]
     Active Substance: CARBIDOPA\LEVODOPA
     Indication: PARKINSON^S DISEASE
     Dosage: 1.8 CC PER HOUR
     Route: 050
     Dates: start: 20190722, end: 2019

REACTIONS (5)
  - Pneumoperitoneum [Fatal]
  - Device kink [Unknown]
  - Ileus [Unknown]
  - Complication associated with device [Unknown]
  - Peritonitis [Fatal]

NARRATIVE: CASE EVENT DATE: 2019
